FAERS Safety Report 5596378-6 (Version None)
Quarter: 2008Q1

REPORT INFORMATION
  Report Type: 
  Country: None (occurrence: None)
  Receive Date: 20080118
  Receipt Date: 20080108
  Transmission Date: 20080703
  Serious: Yes (Other)
  Sender: FDA-Public Use
  Company Number: FI-PFIZER INC-2008001370

PATIENT
  Age: 50 Year
  Sex: Female

DRUGS (1)
  1. CHANTIX [Suspect]
     Indication: SMOKING CESSATION THERAPY
     Route: 048
     Dates: start: 20070517, end: 20070530

REACTIONS (6)
  - ANOSMIA [None]
  - LACRIMATION INCREASED [None]
  - MALAISE [None]
  - OCULAR ICTERUS [None]
  - SINUSITIS [None]
  - SKIN INFECTION [None]
